FAERS Safety Report 6959172-7 (Version None)
Quarter: 2010Q3

REPORT INFORMATION
  Report Type: 
  Country: None (occurrence: None)
  Receive Date: 20100831
  Receipt Date: 20100823
  Transmission Date: 20110219
  Serious: Yes (Other)
  Sender: FDA-Public Use
  Company Number: PHHY2010BR28999

PATIENT
  Sex: Male

DRUGS (9)
  1. INFLUENZA VIRUS VACCINE - PANDEMIC INN (NVD) [Suspect]
     Indication: IMMUNISATION
     Dates: start: 20100430, end: 20100430
  2. INFLUENZA VIRUS VACC SEASONAL INN (NVD) [Suspect]
     Indication: IMMUNISATION
     Dates: start: 20100430, end: 20100430
  3. FORASEQ [Suspect]
     Dosage: 12/400 MCG, UNK
  4. DIGOXIN [Concomitant]
  5. FUROSEMIDE [Concomitant]
  6. CAPTOPRIL [Concomitant]
  7. ANCORON [Concomitant]
  8. MAREVAN [Concomitant]
     Dosage: UNK
  9. LOSARTAN [Concomitant]
     Dosage: TWICW A DAY
     Dates: start: 20100531

REACTIONS (8)
  - CHEST PAIN [None]
  - CONJUNCTIVAL HAEMORRHAGE [None]
  - DYSPNOEA [None]
  - EPISTAXIS [None]
  - ERYTHEMA [None]
  - HEADACHE [None]
  - HYPERSENSITIVITY [None]
  - HYPERTENSION [None]
